FAERS Safety Report 6779262-1 (Version None)
Quarter: 2010Q2

REPORT INFORMATION
  Report Type: 
  Country: None (occurrence: None)
  Receive Date: 20100618
  Receipt Date: 20100615
  Transmission Date: 20101027
  Serious: Yes (Other)
  Sender: FDA-Public Use
  Company Number: DE-ROCHE-707865

PATIENT
  Sex: Female
  Weight: 62 kg

DRUGS (2)
  1. HERCEPTIN [Suspect]
     Route: 042
     Dates: start: 20090701
  2. TAMOXIFEN [Concomitant]
     Route: 065
     Dates: start: 20090801

REACTIONS (1)
  - IRIDOCYCLITIS [None]
